FAERS Safety Report 7776862-7 (Version None)
Quarter: 2011Q3

REPORT INFORMATION
  Report Type: 
  Country: None (occurrence: None)
  Receive Date: 20110926
  Receipt Date: 20110909
  Transmission Date: 20111222
  Serious: Yes (Other)
  Sender: FDA-Public Use
  Company Number: SG-BAYER-2011-083811

PATIENT
  Age: 21 Year
  Sex: Male

DRUGS (2)
  1. VOLTAREN [Suspect]
  2. ACETYLSALICYLIC ACID SRT [Suspect]

REACTIONS (1)
  - ANGIOEDEMA [None]
